FAERS Safety Report 7898340-7 (Version None)
Quarter: 2011Q4

REPORT INFORMATION
  Report Type: 
  Country: None (occurrence: None)
  Receive Date: 20111107
  Receipt Date: 20111102
  Transmission Date: 20120403
  Serious: Yes (Hospitalization)
  Sender: FDA-Public Use
  Company Number: US-BAYER-200830404GPV

PATIENT
  Age: 72 Year
  Sex: Female
  Weight: 68.182 kg

DRUGS (9)
  1. RECOMBINANT PROTEIN OF HUMAN VEGF RECEPTORS (VEGFR1+VEGFR2) [Suspect]
     Indication: AGE-RELATED MACULAR DEGENERATION
     Dosage: 10 DOSES OF 0.5MG VEGF TRAP-EYE Q4W
     Route: 031
     Dates: start: 20080213
  2. CALCIUM [Concomitant]
     Indication: MEDICAL DIET
  3. VICODIN [Concomitant]
     Indication: PAIN
     Dosage: 5MG/500MG
     Route: 048
     Dates: start: 20080227
  4. ACETAMINOPHEN AND TRAMADOL HCL [Concomitant]
     Indication: OSTEOARTHRITIS
     Route: 048
     Dates: start: 20080620, end: 20081026
  5. MULTI-VITAMIN [Concomitant]
     Indication: MEDICAL DIET
     Route: 048
     Dates: start: 20080125
  6. CRESTOR [Concomitant]
     Indication: HYPERCHOLESTEROLAEMIA
     Route: 048
     Dates: start: 20030101
  7. PRESERVISION LUTEIN EYE VITA.+MIN.SUP.SOFTG. [Concomitant]
     Indication: MEDICAL DIET
     Dates: start: 20080125
  8. NAPROXEN [Suspect]
     Indication: OSTEOARTHRITIS
     Route: 048
     Dates: start: 20080101, end: 20081026
  9. OXYCODONE HCL [Suspect]
     Indication: PAIN
     Dates: start: 20080101, end: 20081026

REACTIONS (1)
  - DUODENAL ULCER HAEMORRHAGE [None]
